FAERS Safety Report 7009780-2 (Version None)
Quarter: 2010Q3

REPORT INFORMATION
  Report Type: 
  Country: None (occurrence: None)
  Receive Date: 20100923
  Receipt Date: 20100913
  Transmission Date: 20110219
  Serious: Yes (Hospitalization)
  Sender: FDA-Public Use
  Company Number: CA-JNJFOC-20100904796

PATIENT
  Sex: Male
  Weight: 68.04 kg

DRUGS (6)
  1. REMICADE [Suspect]
     Indication: CROHN'S DISEASE
     Route: 042
  2. REMICADE [Suspect]
     Dosage: 10MG/KG
     Route: 042
  3. MORPHINE [Concomitant]
     Indication: PAIN
     Dosage: 8-10 MG AS NECESSARY
  4. IMURAN [Concomitant]
  5. PREDNISONE [Concomitant]
     Dosage: TO BE TAPERED
  6. ANTIBIOTICS [Concomitant]

REACTIONS (7)
  - DYSURIA [None]
  - GOUT [None]
  - HAEMORRHOIDS [None]
  - OBSTRUCTION [None]
  - PAIN [None]
  - RECTAL FISSURE [None]
  - VISION BLURRED [None]
